FAERS Safety Report 24010682 (Version 3)
Quarter: 2024Q4

REPORT INFORMATION
  Report Type: Report from Study
  Country: US (occurrence: US)
  Receive Date: 20240625
  Receipt Date: 20241023
  Transmission Date: 20250115
  Serious: Yes (Hospitalization, Other)
  Sender: AEGERION
  Company Number: US-AMRYT PHARMACEUTICALS DAC-AEGR007173

PATIENT
  Age: 17 Year
  Sex: Male
  Weight: 21.397 kg

DRUGS (3)
  1. FILSUVEZ [Suspect]
     Active Substance: BIRCH TRITERPENES
     Indication: Epidermolysis bullosa
     Dosage: APPLY A 1 MM LAYER TO AFFECTED WOUND SURFACE(S) AT EACH DRESSING CHANGE UNTIL WOUND IS HEALED - 10 P
     Route: 061
     Dates: start: 20240507, end: 202405
  2. FILSUVEZ [Suspect]
     Active Substance: BIRCH TRITERPENES
     Dosage: APPLY A 1 MM LAYER TO AFFECTED WOUND SURFACE(S) AT EACH DRESSING CHANGE UNTIL WOUND IS HEALED - 10 P
     Route: 061
     Dates: start: 20240507, end: 202409
  3. FILSUVEZ [Suspect]
     Active Substance: BIRCH TRITERPENES
     Dosage: 10% W/W GEL 23.4G, APPLY A 1 MM LAYER TO AFFECTED WOUND SURFACE(S) AT EACH DRESSING CHANGE UNTIL WOU
     Dates: start: 20241011

REACTIONS (10)
  - Oesophageal stenosis [Recovering/Resolving]
  - Eye operation [Recovering/Resolving]
  - Excessive granulation tissue [Not Recovered/Not Resolved]
  - Application site pain [Not Recovered/Not Resolved]
  - Wound complication [Not Recovered/Not Resolved]
  - Wound secretion [Recovering/Resolving]
  - Product colour issue [Not Recovered/Not Resolved]
  - Product use complaint [Recovering/Resolving]
  - Intentional product misuse [Not Recovered/Not Resolved]
  - Product use issue [Unknown]

NARRATIVE: CASE EVENT DATE: 20240901
